FAERS Safety Report 5085084-2 (Version None)
Quarter: 2006Q3

REPORT INFORMATION
  Report Type: 
  Country: None (occurrence: None)
  Receive Date: 20060816
  Receipt Date: 20060731
  Transmission Date: 20061208
  Serious: No
  Sender: FDA-Public Use
  Company Number: 36030

PATIENT
  Age: 55 Year
  Sex: Male

DRUGS (9)
  1. TOBRAMYCIN/DEXAMETHASONE (TOBRADEX OINTMENT) [Suspect]
     Dosage: OPHT
     Route: 047
     Dates: start: 20010401
  2. CIPROFLOXACIN HCL SOLUTION [Concomitant]
  3. PREDNISOLONE [Concomitant]
  4. KETOROLAC TROMETHAMINE [Concomitant]
  5. PREDNISOLONE ACETATE [Concomitant]
  6. LOTEPREDNOL ETABONATE 0.5% [Concomitant]
  7. LEVOFLOXACIN [Concomitant]
  8. PREDNISOLONE [Concomitant]
  9. DICLOFENAC [Concomitant]

REACTIONS (6)
  - INTRAOCULAR LENS DISLOCATION [None]
  - INTRAOCULAR PRESSURE INCREASED [None]
  - MEDICAL DEVICE COMPLICATION [None]
  - POST PROCEDURAL COMPLICATION [None]
  - VISION BLURRED [None]
  - VISUAL ACUITY REDUCED [None]
